FAERS Safety Report 5299234-6 (Version None)
Quarter: 2007Q2

REPORT INFORMATION
  Report Type: 
  Country: None (occurrence: None)
  Receive Date: 20070417
  Receipt Date: 20070411
  Transmission Date: 20071010
  Serious: Yes (Life-Threatening)
  Sender: FDA-Public Use
  Company Number: DEWYE412711APR07

PATIENT
  Sex: Female
  Weight: 65 kg

DRUGS (2)
  1. TYGACIL [Suspect]
     Indication: ENTEROCOCCAL SEPSIS
     Route: 042
     Dates: start: 20060318, end: 20060326
  2. TACROLIMUS [Suspect]
     Indication: IMMUNOSUPPRESSION
     Route: 048
     Dates: start: 20051226, end: 20060411

REACTIONS (4)
  - CHILLS [None]
  - COMA [None]
  - IMMUNOSUPPRESSANT DRUG LEVEL INCREASED [None]
  - MYOCLONUS [None]
